FAERS Safety Report 7536202-5 (Version None)
Quarter: 2011Q2

REPORT INFORMATION
  Report Type: 
  Country: None (occurrence: None)
  Receive Date: 20110602
  Receipt Date: 20110520
  Transmission Date: 20111010
  Serious: Yes (Hospitalization)
  Sender: FDA-Public Use
  Company Number: 1000021164

PATIENT
  Age: 73 Year
  Sex: Male
  Weight: 59 kg

DRUGS (12)
  1. MOXIFLOXACIN (MOXIFLOXACIN) (400 MILLIGRAM, TABLETS) (MOXIFLOXACIN) [Concomitant]
  2. PERINDOPRIL (PERINDOPRIL) (4 MILLIGRAM, TABLETS) (PERINDOPRIL) [Concomitant]
  3. FORMOTEROL (FORMOTEROL) (12 MICROGRAM) (FORMOTEROL) [Concomitant]
  4. OMEPRAZOLE (OMEPRAZOLE) (20 MILLIGRAM, CAPSULES) (OMEPRAZOLE) [Concomitant]
  5. PREDNISOLONE (PREDNISOLONE) (30 MILLIGRAM, CAPSULES) (PREDNISOLONE) [Concomitant]
  6. SIMVASTATIN (SIMVASTATIN) (20 MILLIGRAM, TABLETS) (SIMVASTATIN) [Concomitant]
  7. DOXYCYCLINE (DOXYCYCLINE) (100 MILLIGRAM, TABLETS) (DOXYCYCLINE) [Concomitant]
  8. CARBASALATE CALCIUM (CARBASALATE CALCIUM) (100 MILLIGRAM) (CARBASALATE [Concomitant]
  9. DIPYRIDAMOL (DIPYRIDAMOLE) (200 MILLIGRAM, CAPSULES) (DIPYRIDAMOLE) [Concomitant]
  10. ROFLUMILAST (ROFLUMILAST) (500 MICROGRAM, TABLETS) [Suspect]
     Indication: CHRONIC OBSTRUCTIVE PULMONARY DISEASE
     Dosage: 500 MCG (500 MCG, 1 IN 1 D), ORAL
     Route: 048
     Dates: start: 20110101
  11. BECLOMETHASONE (BECLOMETHASONE DIPROPIONATE) (BECLOMETASONE DIPROPIONA [Concomitant]
  12. TIOTROPIUM (TIOTROPIUM) (18 MICROGRAM) (TIOTROPIUM) [Concomitant]

REACTIONS (6)
  - WEIGHT DECREASED [None]
  - HAEMATOCHEZIA [None]
  - PNEUMONIA [None]
  - ANAEMIA [None]
  - BLOOD URINE PRESENT [None]
  - TRANSIENT ISCHAEMIC ATTACK [None]
